FAERS Safety Report 7903159-4 (Version None)
Quarter: 2011Q4

REPORT INFORMATION
  Report Type: 
  Country: None (occurrence: None)
  Receive Date: 20111109
  Receipt Date: 20110913
  Transmission Date: 20120403
  Serious: No
  Sender: FDA-Public Use
  Company Number: US-GLAXOSMITHKLINE-A0945176A

PATIENT
  Age: 61 Year
  Sex: Female

DRUGS (1)
  1. HYCAMTIN [Suspect]
     Indication: LUNG NEOPLASM MALIGNANT
     Dosage: 4MG SEE DOSAGE TEXT
     Route: 065
     Dates: start: 20110801

REACTIONS (2)
  - WHITE BLOOD CELL COUNT DECREASED [None]
  - PYREXIA [None]
